FAERS Safety Report 14618635 (Version 1)
Quarter: 2018Q1

REPORT INFORMATION
  Report Type: Spontaneous
  Country: DE (occurrence: DE)
  Receive Date: 20180309
  Receipt Date: 20180309
  Transmission Date: 20180509
  Serious: Yes (Other)
  Sender: FDA-Public Use
  Company Number: DE-PFIZER INC-2018097189

PATIENT
  Sex: Female

DRUGS (1)
  1. SOBELIN [Suspect]
     Active Substance: CLINDAMYCIN HYDROCHLORIDE
     Dosage: UNK
     Route: 067

REACTIONS (5)
  - Haematochezia [Recovered/Resolved]
  - Nausea [Recovered/Resolved]
  - Food intolerance [Recovered/Resolved]
  - Gastrointestinal disorder [Recovered/Resolved]
  - Infection [Recovered/Resolved]
